FAERS Safety Report 9888064 (Version 1)
Quarter: 2014Q1

REPORT INFORMATION
  Report Type: Spontaneous
  Country: IL (occurrence: IL)
  Receive Date: 20140211
  Receipt Date: 20140211
  Transmission Date: 20141002
  Serious: Yes (Death)
  Sender: FDA-Public Use
  Company Number: IL-ROXANE LABORATORIES, INC.-2014-RO-00171RO

PATIENT
  Sex: 0

DRUGS (1)
  1. METHADONE [Suspect]
     Indication: DRUG DEPENDENCE

REACTIONS (1)
  - Death [Fatal]
